FAERS Safety Report 6670629-9 (Version None)
Quarter: 2010Q2

REPORT INFORMATION
  Report Type: 
  Country: None (occurrence: None)
  Receive Date: 20100405
  Receipt Date: 20100302
  Transmission Date: 20101027
  Serious: No
  Sender: FDA-Public Use
  Company Number: 20097232

PATIENT
  Age: 53 Year
  Sex: Female

DRUGS (4)
  1. GABALON INTRATHECAL (BACLOFEN INJECTION) [Suspect]
     Indication: MUSCLE SPASTICITY
     Dosage: 400 MCG, DAILY, INTRATHECAL
     Route: 037
     Dates: start: 20070928
  2. MYONAL [Concomitant]
  3. CRAVIT [Concomitant]
  4. IBRUPROFEN [Concomitant]

REACTIONS (7)
  - ACTIVITIES OF DAILY LIVING IMPAIRED [None]
  - CONDITION AGGRAVATED [None]
  - DYSKINESIA [None]
  - MEDICAL DEVICE COMPLICATION [None]
  - MUSCLE SPASMS [None]
  - MUSCULAR WEAKNESS [None]
  - TREMOR [None]
